FAERS Safety Report 8201175 (Version 3)
Quarter: 2014Q2

REPORT INFORMATION
  Report Type: Spontaneous
  Country: PL (occurrence: PL)
  Receive Date: 20111026
  Receipt Date: 20131018
  Transmission Date: 20141212
  Serious: Yes (Death, Other)
  Sender: FDA-Public Use
  Company Number: PL-PFIZER INC-2011254679

PATIENT
  Age: 68 Year
  Sex: Male

DRUGS (6)
  1. METHYLPREDNISOLONE SODIUM SUCCINATE [Suspect]
     Dosage: 500 MG, ^3 PULSES^
     Route: 042
  2. PREDNISONE [Suspect]
     Dosage: 60 MG/DAY
  3. PREDNISONE [Suspect]
     Dosage: 45 MG/DAY
  4. METHOTREXATE [Suspect]
     Dosage: 20 MG, WEEKLY
  5. COLCHICINE [Suspect]
     Dosage: 0.5 MG/DAY
  6. COLCHICINE [Suspect]
     Dosage: 1 MG/DAY

REACTIONS (4)
  - Sepsis [Fatal]
  - Immunosuppression [Fatal]
  - Inflammation [Unknown]
  - Drug ineffective [Unknown]
